FAERS Safety Report 4865621-0 (Version None)
Quarter: 2005Q4

REPORT INFORMATION
  Report Type: 
  Country: None (occurrence: None)
  Receive Date: 20051220
  Receipt Date: 20051209
  Transmission Date: 20060501
  Serious: Yes (Death, Hospitalization, Other)
  Sender: FDA-Public Use
  Company Number: 2005166799

PATIENT
  Sex: Male

DRUGS (1)
  1. LIPITOR [Suspect]
     Indication: BLOOD CHOLESTEROL INCREASED

REACTIONS (5)
  - FATIGUE [None]
  - HEPATIC NEOPLASM MALIGNANT [None]
  - HEPATOCELLULAR DAMAGE [None]
  - MYASTHENIA GRAVIS [None]
  - TUBERCULOSIS [None]
